FAERS Safety Report 15324386 (Version 3)
Quarter: 2018Q4

REPORT INFORMATION
  Report Type: Spontaneous
  Country: BR (occurrence: BR)
  Receive Date: 20180828
  Receipt Date: 20181031
  Transmission Date: 20190204
  Serious: Yes (Other)
  Sender: FDA-Public Use
  Company Number: BR-AMGEN-BRASP2012058554

PATIENT
  Age: 52 Year
  Sex: Male
  Weight: 66 kg

DRUGS (1)
  1. ENBREL [Suspect]
     Active Substance: ETANERCEPT
     Indication: ANKYLOSING SPONDYLITIS
     Dosage: 50 MG, ONCE WEEKLY
     Route: 058
     Dates: start: 201103

REACTIONS (4)
  - Deafness [Not Recovered/Not Resolved]
  - Injection site swelling [Not Recovered/Not Resolved]
  - Ear infection [Not Recovered/Not Resolved]
  - Injection site pain [Not Recovered/Not Resolved]

NARRATIVE: CASE EVENT DATE: 2017
